FAERS Safety Report 19488991 (Version 1)
Quarter: 2021Q3

REPORT INFORMATION
  Report Type: Spontaneous
  Country: CN (occurrence: CN)
  Receive Date: 20210702
  Receipt Date: 20210702
  Transmission Date: 20211014
  Serious: Yes (Other)
  Sender: FDA-Public Use
  Company Number: CN-ROCHE-2861864

PATIENT
  Age: 64 Year
  Sex: Male
  Weight: 49 kg

DRUGS (5)
  1. XELODA [Suspect]
     Active Substance: CAPECITABINE
     Dosage: 1.5G IN THE MORNING, 1.0G IN THE AFTERNOON
     Route: 048
     Dates: start: 20210530, end: 20210701
  2. CISPLATIN. [Suspect]
     Active Substance: CISPLATIN
     Indication: OESOPHAGEAL CARCINOMA
     Dosage: 30 MG DAY1?2, 40 MG DAY3
     Route: 041
     Dates: start: 20210502, end: 20210506
  3. XELODA [Suspect]
     Active Substance: CAPECITABINE
     Indication: OESOPHAGEAL CARCINOMA
     Dosage: 1.5G IN THE MORNING, 1.0G IN THE EVENING
     Route: 048
     Dates: start: 20210502, end: 20210506
  4. CISPLATIN. [Suspect]
     Active Substance: CISPLATIN
     Route: 041
     Dates: start: 20210531, end: 20210602
  5. SODIUM CHLORIDE. [Concomitant]
     Active Substance: SODIUM CHLORIDE
     Dosage: SOLVENT
     Route: 041
     Dates: start: 20210531, end: 20210602

REACTIONS (2)
  - Off label use [Unknown]
  - Myelosuppression [Recovering/Resolving]

NARRATIVE: CASE EVENT DATE: 20210504
